FAERS Safety Report 5630217-X (Version None)
Quarter: 2008Q1

REPORT INFORMATION
  Report Type: 
  Country: None (occurrence: None)
  Receive Date: 20080219
  Receipt Date: 20080208
  Transmission Date: 20080703
  Serious: Yes (Hospitalization, Other)
  Sender: FDA-Public Use
  Company Number: DE-ELI_LILLY_AND_COMPANY-DE200802001947

PATIENT
  Sex: Female
  Weight: 63 kg

DRUGS (11)
  1. OLANZAPINE [Suspect]
     Indication: DEPRESSION
     Dosage: 15 MG, EACH EVENING
     Route: 048
     Dates: start: 20070501, end: 20070726
  2. SEROQUEL [Concomitant]
     Dosage: 100 MG, DAILY (1/D)
     Route: 048
     Dates: start: 20070710, end: 20070717
  3. SEROQUEL [Concomitant]
     Dosage: 250 MG, DAILY (1/D)
     Dates: start: 20070718, end: 20070724
  4. DOMINAL [Concomitant]
     Dosage: 200 MG, DAILY (1/D)
     Dates: start: 20070707, end: 20070724
  5. ESTRADIOL VALERATE [Concomitant]
     Dosage: 1 D/F, DAILY (1/D)
     Route: 048
     Dates: start: 20070712
  6. EUTHYROX [Concomitant]
     Dosage: 75 UG, EACH MORNING
     Route: 048
     Dates: start: 19960101
  7. TAVOR [Concomitant]
  8. JATROSOM [Concomitant]
     Dates: end: 20070701
  9. JATROSOM [Concomitant]
     Dosage: 10 MG, DAILY (1/D)
     Dates: start: 20070701, end: 20070101
  10. PROPOFOL [Concomitant]
     Indication: ANAESTHESIA
     Dosage: UNK, UNK
     Dates: start: 20070723
  11. ATRACURIUM BESYLATE [Concomitant]
     Indication: ANAESTHESIA
     Dates: start: 20070723

REACTIONS (8)
  - ALANINE AMINOTRANSFERASE INCREASED [None]
  - ASPARTATE AMINOTRANSFERASE INCREASED [None]
  - BLOOD CREATINE PHOSPHOKINASE INCREASED [None]
  - C-REACTIVE PROTEIN INCREASED [None]
  - DEPRESSIVE DELUSION [None]
  - HYPOTHERMIA [None]
  - INAPPROPRIATE ANTIDIURETIC HORMONE SECRETION [None]
  - NEUROLEPTIC MALIGNANT SYNDROME [None]
